FAERS Safety Report 6873382-9 (Version None)
Quarter: 2010Q3

REPORT INFORMATION
  Report Type: 
  Country: None (occurrence: None)
  Receive Date: 20100721
  Receipt Date: 20100709
  Transmission Date: 20110219
  Serious: Yes (Hospitalization)
  Sender: FDA-Public Use
  Company Number: 7007399

PATIENT
  Age: 59 Year
  Sex: Male
  Weight: 90 kg

DRUGS (2)
  1. REBIF [Suspect]
     Indication: MULTIPLE SCLEROSIS
     Dosage: 44 MCG, 3 IN 1 WK, SUBCUTANEOUS
     Route: 058
     Dates: start: 20080101
  2. ATENOLOL [Concomitant]

REACTIONS (4)
  - GAIT DISTURBANCE [None]
  - INFECTION [None]
  - MASS [None]
  - MULTIPLE SCLEROSIS RELAPSE [None]
